FAERS Safety Report 5259910-8 (Version None)
Quarter: 2007Q1

REPORT INFORMATION
  Report Type: 
  Country: None (occurrence: None)
  Receive Date: 20070309
  Receipt Date: 20070228
  Transmission Date: 20070707
  Serious: Yes (Other)
  Sender: FDA-Public Use
  Company Number: CA-ROCHE-485081

PATIENT
  Age: 17 Year
  Sex: Male
  Weight: 64 kg

DRUGS (2)
  1. ACCUTANE [Suspect]
     Indication: DRUG USE FOR UNKNOWN INDICATION
     Route: 048
  2. SYNTHROID [Concomitant]
     Route: 048

REACTIONS (3)
  - BLINDNESS [None]
  - PHOTOPSIA [None]
  - VISUAL FIELD DEFECT [None]
